FAERS Safety Report 21620709 (Version 1)
Quarter: 2022Q4

REPORT INFORMATION
  Report Type: Other
  Country: None (occurrence: IR)
  Receive Date: 20221121
  Receipt Date: 20221121
  Transmission Date: 20230112
  Serious: Yes (Hospitalization, Other)
  Sender: FDA-Public Use
  Company Number: IR-Appco Pharma LLC-2135091

PATIENT
  Age: 59 Year
  Sex: Male

DRUGS (3)
  1. HYDROXYCHLOROQUINE SULFATE [Suspect]
     Active Substance: HYDROXYCHLOROQUINE SULFATE
     Indication: COVID-19
     Route: 065
  2. DACLATASVIR\SOFOSBUVIR [Suspect]
     Active Substance: DACLATASVIR\SOFOSBUVIR
     Route: 065
  3. DEXAMETHASONE [Suspect]
     Active Substance: DEXAMETHASONE
     Route: 065

REACTIONS (2)
  - Therapeutic product ineffective for unapproved indication [Unknown]
  - Condition aggravated [Unknown]
